FAERS Safety Report 5119414-X (Version None)
Quarter: 2006Q3

REPORT INFORMATION
  Report Type: 
  Country: None (occurrence: None)
  Receive Date: 20060928
  Receipt Date: 20060920
  Transmission Date: 20061208
  Serious: Yes (Other)
  Sender: FDA-Public Use
  Company Number: 229836

PATIENT
  Age: 66 Year
  Sex: Female

DRUGS (22)
  1. LUCENTIS [Suspect]
     Indication: MACULAR DEGENERATION
     Dosage: 0.5 ML, 1/MONTH, INTRAVITREAL
     Dates: start: 20060901
  2. AVELOX [Concomitant]
  3. ZYMAR [Concomitant]
  4. DILTIAZEM HCL [Concomitant]
  5. HUMALOG [Concomitant]
  6. HUMULIN (INSULIN HUMAN) [Concomitant]
  7. K-DUR 20 (POTASSIUM CHLORIDE) [Concomitant]
  8. LESCOL [Concomitant]
  9. LISINOPRIL [Concomitant]
  10. NEURONTIN [Concomitant]
  11. PLAVIX [Concomitant]
  12. PROTONIX [Concomitant]
  13. ASPIRIN [Concomitant]
  14. SALSALATE [Concomitant]
  15. SYNTHROID [Concomitant]
  16. TOPAMAX [Concomitant]
  17. VIVELLE [Concomitant]
  18. ALPHAGAN P [Concomitant]
  19. COSOPT (DORZOLAMIDE HYDROCHLORIDE) [Concomitant]
  20. PRED FORTE [Concomitant]
  21. RESTASIS (CYCLOSPORINE) [Concomitant]
  22. XALATAN [Concomitant]

REACTIONS (4)
  - CHEST PAIN [None]
  - HYPOAESTHESIA ORAL [None]
  - SKIN EXFOLIATION [None]
  - STOMATITIS [None]
